FAERS Safety Report 21933383 (Version 1)
Quarter: 2023Q1

REPORT INFORMATION
  Report Type: Spontaneous
  Country: US (occurrence: US)
  Receive Date: 20230131
  Receipt Date: 20230131
  Transmission Date: 20230418
  Serious: Yes (Hospitalization, Other)
  Sender: FDA-Public Use
  Company Number: US-BRISTOL-MYERS SQUIBB COMPANY-2022-043055

PATIENT
  Age: 80 Year
  Sex: Male

DRUGS (2)
  1. POMALYST [Suspect]
     Active Substance: POMALIDOMIDE
     Indication: Plasma cell myeloma in remission
     Dosage: DOSAGE CYCLE: FOR 3 WEEKS ON THEN 1 WEEK OFF, LAST DOSE TAKEN 12-AUG-2022
     Route: 048
     Dates: start: 20180211
  2. POMALYST [Suspect]
     Active Substance: POMALIDOMIDE

REACTIONS (1)
  - Angina pectoris [Unknown]
